FAERS Safety Report 9424763 (Version 1)
Quarter: 2013Q3

REPORT INFORMATION
  Report Type: Spontaneous
  Country: KR (occurrence: None)
  Receive Date: 20130725
  Receipt Date: 20130725
  Transmission Date: 20140515
  Serious: Yes (Hospitalization)
  Sender: FDA-Public Use
  Company Number: JP-2013-12601

PATIENT
  Age: 36 Year
  Sex: Male
  Weight: 69 kg

DRUGS (2)
  1. CILOSTAZOL [Suspect]
     Indication: THROMBOANGIITIS OBLITERANS
     Route: 048
     Dates: start: 20130520
  2. CILOSTAZOL [Suspect]
     Indication: OSTEOMYELITIS
     Route: 048
     Dates: start: 20130520

REACTIONS (6)
  - Wound [None]
  - Condition aggravated [None]
  - Pain in extremity [None]
  - Hypoaesthesia [None]
  - Feeling cold [None]
  - Peripheral artery restenosis [None]
